FAERS Safety Report 4747808-0 (Version None)
Quarter: 2005Q3

REPORT INFORMATION
  Report Type: 
  Country: None (occurrence: None)
  Receive Date: 20050816
  Receipt Date: 20050726
  Transmission Date: 20060218
  Serious: Yes (Hospitalization)
  Sender: FDA-Public Use
  Company Number: 02100-USA-03-0071

PATIENT
  Age: 76 Year
  Sex: Male

DRUGS (11)
  1. PLETAL [Suspect]
     Indication: INTERMITTENT CLAUDICATION
     Dosage: 100 MG BID ORAL
     Route: 048
     Dates: start: 20030106, end: 20030114
  2. PLETAL [Suspect]
     Indication: INTERMITTENT CLAUDICATION
     Dosage: 50 MG BID ORAL
     Route: 048
     Dates: start: 20030106, end: 20030114
  3. SYNTHROID [Concomitant]
  4. ATENOLOL [Concomitant]
  5. GLUCOVANCE [Concomitant]
  6. ALBUTEROL [Concomitant]
  7. ECOTRIN [Concomitant]
  8. LIPITOR [Concomitant]
  9. ALTACE [Concomitant]
  10. NITROGLYCERIN ^A.L.^ [Concomitant]
  11. MULTI-VITAMINS [Concomitant]

REACTIONS (10)
  - ACTIVATED PARTIAL THROMBOPLASTIN TIME PROLONGED [None]
  - ATRIAL FIBRILLATION [None]
  - BLOOD CREATINE PHOSPHOKINASE MB INCREASED [None]
  - CHEST PAIN [None]
  - CREATINE PHOSPHOKINASE DECREASED [None]
  - INTERNATIONAL NORMALISED RATIO INCREASED [None]
  - LEUKOPENIA [None]
  - PALPITATIONS [None]
  - PROTHROMBIN TIME PROLONGED [None]
  - THROMBOCYTOPENIA [None]
